FAERS Safety Report 25209370 (Version 1)
Quarter: 2025Q2

REPORT INFORMATION
  Report Type: Spontaneous
  Country: US (occurrence: US)
  Receive Date: 20250417
  Receipt Date: 20250417
  Transmission Date: 20250717
  Serious: No
  Sender: SANOFI AVENTIS
  Company Number: US-SA-2025SA110771

PATIENT
  Sex: Female

DRUGS (18)
  1. DUPIXENT [Suspect]
     Active Substance: DUPILUMAB
     Indication: Multiple sclerosis
  2. ATORVASTATIN [Concomitant]
     Active Substance: ATORVASTATIN
  3. CLOBETASOL PROPIONATE [Concomitant]
     Active Substance: CLOBETASOL PROPIONATE
  4. FAMOTIDINE [Concomitant]
     Active Substance: FAMOTIDINE
  5. GABAPENTIN [Concomitant]
     Active Substance: GABAPENTIN
  6. HYDROXYZINE [Concomitant]
     Active Substance: HYDROXYZINE HYDROCHLORIDE
  7. IBUPROFEN [Concomitant]
     Active Substance: IBUPROFEN
  8. INSULIN ASPART [Concomitant]
     Active Substance: INSULIN ASPART
  9. LAMOTRIGINE [Concomitant]
     Active Substance: LAMOTRIGINE
  10. LANTUS SOLOSTAR [Concomitant]
     Active Substance: INSULIN GLARGINE
  11. LISINOPRIL [Concomitant]
     Active Substance: LISINOPRIL
  12. LORATADINE [Concomitant]
     Active Substance: LORATADINE
  13. METFORMIN HYDROCHLORIDE [Concomitant]
     Active Substance: METFORMIN HYDROCHLORIDE
  14. METOPROLOL SUCCINATE [Concomitant]
     Active Substance: METOPROLOL SUCCINATE
  15. VITAMINS [Concomitant]
     Active Substance: VITAMINS
  16. TIMOLOL MALEATE [Concomitant]
     Active Substance: TIMOLOL MALEATE
  17. TYLENOL 8HR [Concomitant]
     Active Substance: ACETAMINOPHEN
  18. VITAMIN D [Concomitant]
     Active Substance: VITAMIN D NOS

REACTIONS (5)
  - Vision blurred [Not Recovered/Not Resolved]
  - Eye pruritus [Not Recovered/Not Resolved]
  - Blepharitis [Not Recovered/Not Resolved]
  - Condition aggravated [Not Recovered/Not Resolved]
  - Product use in unapproved indication [Unknown]
